FAERS Safety Report 7722554-X (Version None)
Quarter: 2011Q3

REPORT INFORMATION
  Report Type: 
  Country: None (occurrence: None)
  Receive Date: 20110831
  Receipt Date: 20110824
  Transmission Date: 20111222
  Serious: Yes (Other)
  Sender: FDA-Public Use
  Company Number: IT-ABBOTT-11P-083-0849037-00

PATIENT
  Age: 46 Year
  Sex: Female

DRUGS (4)
  1. DEPAKINE CHRONO TABLETS EXTENDED RELEASE [Suspect]
     Indication: SELF INJURIOUS BEHAVIOUR
     Route: 048
     Dates: start: 20110726, end: 20110726
  2. HALDOL [Suspect]
     Indication: SELF INJURIOUS BEHAVIOUR
     Route: 048
     Dates: start: 20110726, end: 20110726
  3. DISIPAL [Suspect]
     Indication: SELF INJURIOUS BEHAVIOUR
     Route: 048
     Dates: start: 20110726, end: 20110726
  4. CLONAZEPAM [Suspect]
     Indication: SELF INJURIOUS BEHAVIOUR
     Route: 048
     Dates: start: 20110726, end: 20110726

REACTIONS (2)
  - PSYCHOMOTOR RETARDATION [None]
  - INTENTIONAL DRUG MISUSE [None]
